FAERS Safety Report 7221646-1 (Version None)
Quarter: 2011Q1

REPORT INFORMATION
  Report Type: 
  Country: None (occurrence: None)
  Receive Date: 20110112
  Receipt Date: 20110107
  Transmission Date: 20110831
  Serious: Yes (Hospitalization, Other)
  Sender: FDA-Public Use
  Company Number: FR-ROCHE-746312

PATIENT
  Sex: Female

DRUGS (3)
  1. COPEGUS [Suspect]
     Route: 048
  2. COPEGUS [Suspect]
     Route: 048
  3. PEGASYS [Suspect]
     Route: 058

REACTIONS (2)
  - GOUT [None]
  - LISTERIOSIS [None]
